FAERS Safety Report 5204214-2 (Version None)
Quarter: 2007Q1

REPORT INFORMATION
  Report Type: 
  Country: None (occurrence: None)
  Receive Date: 20070110
  Receipt Date: 20060110
  Transmission Date: 20070707
  Serious: Yes (Hospitalization)
  Sender: FDA-Public Use
  Company Number: US-BRISTOL-MYERS SQUIBB COMPANY-13241732

PATIENT
  Age: 15 Year
  Sex: Female
  Weight: 58 kg

DRUGS (2)
  1. ABILIFY [Suspect]
     Indication: OPPOSITIONAL DEFIANT DISORDER
     Dosage: INITIATED AT 2.5 MG BID
     Route: 048
     Dates: start: 20050920, end: 20051208
  2. ABILIFY [Suspect]
     Indication: DEPRESSION
     Dosage: INITIATED AT 2.5 MG BID
     Route: 048
     Dates: start: 20050920, end: 20051208

REACTIONS (3)
  - FATIGUE [None]
  - PETECHIAE [None]
  - THROMBOCYTOPENIA [None]
